FAERS Safety Report 9321981 (Version 1)
Quarter: 2013Q2

REPORT INFORMATION
  Report Type: Spontaneous
  Country: US (occurrence: US)
  Receive Date: 20130531
  Receipt Date: 20130531
  Transmission Date: 20140414
  Serious: Yes (Other)
  Sender: FDA-Public Use
  Company Number: US-JNJFOC-2006097483

PATIENT
  Sex: Female

DRUGS (8)
  1. IBUPROFEN [Suspect]
     Indication: SWELLING
     Dosage: DAILY DOSE QTY: 1600 MG
     Route: 065
     Dates: start: 2006
  2. IBUPROFEN [Suspect]
     Indication: FIBROMYALGIA
     Dosage: DAILY DOSE QTY: 1600 MG
     Route: 065
     Dates: start: 2006
  3. CHANTIX [Interacting]
     Indication: SMOKING CESSATION THERAPY
     Dosage: DAILY DOSE QTY: 1 MG
     Route: 048
     Dates: start: 20060714
  4. PROVIGIL [Interacting]
     Indication: NARCOLEPSY
     Route: 065
     Dates: start: 20060705
  5. NORCO [Interacting]
     Indication: NECK PAIN
     Route: 065
  6. ALL OTHER THERAPEUTIC PRODUCTS [Concomitant]
     Route: 065
  7. CORRECTOL ^ALCON^ [Concomitant]
     Route: 065
  8. ALL OTHER THERAPEUTIC PRODUCTS [Concomitant]
     Route: 065

REACTIONS (4)
  - Narcolepsy [Unknown]
  - Drug interaction [Unknown]
  - Constipation [Not Recovered/Not Resolved]
  - Flatulence [Not Recovered/Not Resolved]
